FAERS Safety Report 18597799 (Version 3)
Quarter: 2022Q1

REPORT INFORMATION
  Report Type: Spontaneous
  Country: CO (occurrence: CO)
  Receive Date: 20201210
  Receipt Date: 20220204
  Transmission Date: 20220423
  Serious: Yes (Other)
  Sender: FDA-Public Use
  Company Number: CO-AMGEN-COLSP2020198898

PATIENT
  Age: 53 Year
  Sex: Female
  Weight: 59 kg

DRUGS (14)
  1. MVASI [Suspect]
     Active Substance: BEVACIZUMAB-AWWB
     Indication: Ovarian cancer
     Dosage: 825 MILLIGRAM, QD
     Route: 042
     Dates: start: 20201001
  2. MVASI [Suspect]
     Active Substance: BEVACIZUMAB-AWWB
     Dosage: 870 MILLIGRAM, QD
     Route: 042
     Dates: start: 20210729
  3. MVASI [Suspect]
     Active Substance: BEVACIZUMAB-AWWB
     Dosage: 885 MILLIGRAM, QD
     Route: 042
  4. PEGFILGRASTIM [Suspect]
     Active Substance: PEGFILGRASTIM
     Indication: Ovarian cancer
     Dosage: 6MG/0.6ML, QD
     Route: 065
  5. PACLITAXEL [Concomitant]
     Active Substance: PACLITAXEL
     Indication: Ovarian cancer
     Dosage: 271.25 MILLIGRAM, QD
     Route: 042
     Dates: start: 20201001
  6. CARBOPLATIN [Concomitant]
     Active Substance: CARBOPLATIN
     Indication: Ovarian cancer
     Dosage: 528.5 MILLIGRAM, QD
     Route: 042
     Dates: start: 20201001
  7. FOSAPREPITANT [Concomitant]
     Active Substance: FOSAPREPITANT
     Indication: Ovarian cancer
     Dosage: 150 MILLIGRAM, QD
     Route: 042
     Dates: start: 20201001
  8. ONDANSETRON [Concomitant]
     Active Substance: ONDANSETRON
     Indication: Ovarian cancer
     Dosage: 16 MILLIGRAM, QD
     Route: 042
     Dates: start: 20201001
  9. DEXAMETHASONE PHOSPHATE [Concomitant]
     Active Substance: DEXAMETHASONE PHOSPHATE
     Indication: Ovarian cancer
     Dosage: 16 MILLIGRAM, QD
     Route: 042
     Dates: start: 20201001
  10. DEXAMETHASONE PHOSPHATE [Concomitant]
     Active Substance: DEXAMETHASONE PHOSPHATE
     Dosage: 8 MILLIGRAM, QD
     Route: 042
     Dates: start: 20210729
  11. DIPHENHYDRAMINE HYDROCHLORIDE [Concomitant]
     Active Substance: DIPHENHYDRAMINE HYDROCHLORIDE
     Dosage: 10 MILLIGRAM, QD
     Route: 042
     Dates: start: 20201001
  12. ACETAMINOPHEN [Concomitant]
     Active Substance: ACETAMINOPHEN
     Indication: Pain
     Dosage: 500 MILLIGRAM, Q8H
     Route: 048
     Dates: start: 20201026, end: 20201126
  13. AMITRIPTYLINE [Concomitant]
     Active Substance: AMITRIPTYLINE
     Indication: Depression
     Dosage: 25 MILLIGRAM, QD
     Route: 048
     Dates: start: 20201026, end: 20201126
  14. OXYGEN [Concomitant]
     Active Substance: OXYGEN
     Dosage: 21% NASAL CANNULA AT 2, 12 HOURS/DAY - 12 HOURS/NIGHT, FOR 180

REACTIONS (11)
  - Device occlusion [Recovering/Resolving]
  - Hyperhidrosis [Not Recovered/Not Resolved]
  - Musculoskeletal pain [Recovering/Resolving]
  - Off label use [Unknown]
  - Night sweats [Not Recovered/Not Resolved]
  - Insomnia [Not Recovered/Not Resolved]
  - Disturbance in attention [Not Recovered/Not Resolved]
  - Panic reaction [Recovered/Resolved]
  - Oedema peripheral [Recovering/Resolving]
  - Nasal congestion [Recovering/Resolving]
  - Tooth fracture [Not Recovered/Not Resolved]

NARRATIVE: CASE EVENT DATE: 20201001
